FAERS Safety Report 5659169-3 (Version None)
Quarter: 2008Q1

REPORT INFORMATION
  Report Type: 
  Country: None (occurrence: None)
  Receive Date: 20080311
  Receipt Date: 20070529
  Transmission Date: 20080703
  Serious: No
  Sender: FDA-Public Use
  Company Number: US-BAYER-200711727BCC

PATIENT
  Sex: Female
  Weight: 53 kg

DRUGS (12)
  1. ALEVE [Suspect]
     Indication: ARTHRITIS
     Dosage: AS USED: 440 MG  UNIT DOSE: 220 MG
     Route: 048
  2. TYLENOL (CAPLET) [Concomitant]
  3. WARFARIN SODIUM [Concomitant]
  4. LISINOPRIL [Concomitant]
  5. RANITIDINE [Concomitant]
  6. REQUIP [Concomitant]
  7. BONIVA [Concomitant]
  8. FOLIC ACID [Concomitant]
  9. LIPITOR [Concomitant]
  10. FEXOFENADINE [Concomitant]
  11. IRON [Concomitant]
  12. CALCIUM [Concomitant]

REACTIONS (3)
  - ABDOMINAL PAIN UPPER [None]
  - DIARRHOEA [None]
  - NAUSEA [None]
